FAERS Safety Report 7623408-X (Version None)
Quarter: 2011Q3

REPORT INFORMATION
  Report Type: 
  Country: None (occurrence: None)
  Receive Date: 20110712
  Receipt Date: 20110628
  Transmission Date: 20111222
  Serious: Yes (Death, Hospitalization)
  Sender: FDA-Public Use
  Company Number: MTX-11-01

PATIENT
  Age: 75 Year
  Sex: Male

DRUGS (2)
  1. METHOTREXATE [Suspect]
     Indication: WEGENER'S GRANULOMATOSIS
  2. LEFLUNOMIDE [Concomitant]

REACTIONS (1)
  - MYOCARDIAL INFARCTION [None]
